FAERS Safety Report 7337813-2 (Version None)
Quarter: 2011Q1

REPORT INFORMATION
  Report Type: 
  Country: None (occurrence: None)
  Receive Date: 20110308
  Receipt Date: 20110224
  Transmission Date: 20110831
  Serious: Yes (Disabling, Other)
  Sender: FDA-Public Use
  Company Number: SE-SANOFI-AVENTIS-2011SA011587

PATIENT
  Sex: Male

DRUGS (1)
  1. MULTAQ [Suspect]
     Indication: ATRIAL FIBRILLATION
     Route: 048
     Dates: start: 20101001

REACTIONS (5)
  - ATRIAL FIBRILLATION [None]
  - SENSORY LOSS [None]
  - POLYNEUROPATHY [None]
  - MOTOR DYSFUNCTION [None]
  - PAIN IN EXTREMITY [None]
